FAERS Safety Report 10271052 (Version 1)
Quarter: 2014Q1

REPORT INFORMATION
  Report Type: Spontaneous
  Country: US (occurrence: None)
  Receive Date: 20140306
  Receipt Date: 20140306
  Transmission Date: 20141002
  Serious: Yes (Hospitalization, Other)
  Sender: FDA-Public Use
  Company Number: 163-21880-13081349

PATIENT
  Age: 75 Year
  Sex: Male
  Weight: 68 kg

DRUGS (12)
  1. REVLIMID (LENALIDOMIDE) (CAPSULES) [Suspect]
     Indication: PLASMA CELL MYELOMA
     Dosage: 15 MG, 1 IN 1 D, PO
     Route: 048
     Dates: start: 201307
  2. CALCITRIOL (CALCITRIOL) (CAPSULES) [Concomitant]
  3. DRONABINOL (DRONABINOL) (CAPSULES) [Concomitant]
  4. TORSEMIDE (TORASEMIDE) (TABLETS) [Concomitant]
  5. MIRTAZAPINE (MIRTAZAPINE) (TABLETS) [Concomitant]
  6. DIPHENOXYLATE-ATROPINE (LOMOTIL) (TABLETS) [Concomitant]
  7. WARFARIN SODIUM (WARFARIN SODIUM) (TABLETS) [Concomitant]
  8. HYDROCODONE/ACETAMINOPHEN (REMEDEINE) (UNKNOWN) [Concomitant]
  9. NITROGLYCERINE (GLYCERTYL TRINITRATE) (TABLETS) [Concomitant]
  10. COMPLETE MULTIVITAMINS (MULTIVITAMINS) (TABLETS) [Concomitant]
  11. COMBIVENT (COMBIVENT) (INHALANT) [Concomitant]
  12. FLUTICASONE (FLUTICASONE) (SPRAY (NOT INHALATION)) [Concomitant]

REACTIONS (2)
  - Renal failure [None]
  - Full blood count decreased [None]
